FAERS Safety Report 11167240 (Version 1)
Quarter: 2015Q2

REPORT INFORMATION
  Report Type: Spontaneous
  Country: US (occurrence: US)
  Receive Date: 20150605
  Receipt Date: 20150605
  Transmission Date: 20150821
  Serious: No
  Sender: FDA-Public Use
  Company Number: US-ASTRAZENECA-2015SE52585

PATIENT
  Sex: Male
  Weight: 68 kg

DRUGS (2)
  1. OTHER MEDICATION [Concomitant]
     Active Substance: UNSPECIFIED INGREDIENT
  2. SYMBICORT [Suspect]
     Active Substance: BUDESONIDE\FORMOTEROL FUMARATE DIHYDRATE
     Dosage: TWO PUFFS TWICE A DAY
     Route: 055

REACTIONS (4)
  - Ear pain [Unknown]
  - Drug dispensing error [Unknown]
  - Dyspnoea [Unknown]
  - Feeling abnormal [Unknown]
